FAERS Safety Report 7721210-1 (Version None)
Quarter: 2011Q3

REPORT INFORMATION
  Report Type: 
  Country: None (occurrence: None)
  Receive Date: 20110831
  Receipt Date: 20110824
  Transmission Date: 20111222
  Serious: Yes (Hospitalization, Other)
  Sender: FDA-Public Use
  Company Number: JP-B.I. PHARMACEUTICALS,INC./RIDGEFIELD-2011-BP-20295NB

PATIENT
  Age: 73 Year
  Sex: Female
  Weight: 56.5 kg

DRUGS (14)
  1. DIOVAN [Concomitant]
     Indication: HYPERTENSION
     Dosage: 40 MG
     Route: 048
  2. THREENOFEN [Concomitant]
     Dosage: 180 MG
     Route: 048
     Dates: start: 20110809
  3. IDALON [Concomitant]
     Dosage: 300 MG
     Route: 048
  4. LENDORMIN [Concomitant]
     Route: 048
  5. JANUVIA [Concomitant]
     Indication: DIABETES MELLITUS
     Dosage: 50 MG
     Route: 048
     Dates: start: 20110512
  6. PRADAXA [Suspect]
     Indication: ATRIAL FIBRILLATION
     Dosage: 300 MG
     Route: 048
     Dates: start: 20110609, end: 20110811
  7. ASPIRIN [Suspect]
     Dosage: 100 MG
     Route: 048
     Dates: end: 20110811
  8. FERROUS CITRATE [Concomitant]
     Dosage: 100 MG
     Route: 048
     Dates: start: 20110721
  9. CONIEL [Concomitant]
     Indication: HYPERTENSION
     Dosage: 2 MG
     Route: 048
  10. TORSEMIDE [Concomitant]
     Dosage: 8 MG
     Route: 048
  11. DIGOXIN [Concomitant]
     Dosage: 0.125 MG
     Route: 048
  12. LIVALO [Concomitant]
     Indication: DYSLIPIDAEMIA
     Dosage: 2 MG
     Route: 048
  13. CINAL [Concomitant]
     Route: 048
     Dates: start: 20110721
  14. ALLOPURINOL [Concomitant]
     Dosage: 200 MG
     Route: 048

REACTIONS (3)
  - LARGE INTESTINAL HAEMORRHAGE [None]
  - MELAENA [None]
  - DIVERTICULUM INTESTINAL [None]
